FAERS Safety Report 12772365 (Version 4)
Quarter: 2016Q4

REPORT INFORMATION
  Report Type: Report from Study
  Country: None (occurrence: GR)
  Receive Date: 20160922
  Receipt Date: 20161116
  Transmission Date: 20170207
  Serious: Yes (Hospitalization)
  Sender: FDA-Public Use
  Company Number: GR-ABBVIE-16K-066-1733108-00

PATIENT
  Age: 74 Year
  Sex: Male

DRUGS (9)
  1. ALFURAL [Concomitant]
     Indication: BENIGN PROSTATIC HYPERPLASIA
     Route: 048
  2. LEXOTANIL [Concomitant]
     Active Substance: BROMAZEPAM
     Indication: PRODUCT USED FOR UNKNOWN INDICATION
     Route: 048
  3. MADOPAR [Concomitant]
     Active Substance: BENSERAZIDE HYDROCHLORIDE\LEVODOPA
     Route: 048
  4. EFEXOR [Concomitant]
     Active Substance: VENLAFAXINE HYDROCHLORIDE
     Indication: DEPRESSION
     Route: 048
  5. STILNOX [Concomitant]
     Active Substance: ZOLPIDEM TARTRATE
     Indication: ANXIOLYTIC THERAPY
     Route: 048
  6. DUODOPA [Suspect]
     Active Substance: CARBIDOPA\LEVODOPA
     Indication: PARKINSON^S DISEASE
     Dosage: MD: 13 ML;CR: 7.4 ML/H;ED: 3 ML
     Route: 050
     Dates: start: 201311, end: 20160919
  7. MADOPAR [Concomitant]
     Active Substance: BENSERAZIDE HYDROCHLORIDE\LEVODOPA
     Indication: PARKINSON^S DISEASE
     Dosage: ONCE DAILY (NIGHT) WHEN THE PUMP IS OFF
     Route: 048
  8. LEPONEX [Concomitant]
     Active Substance: CLOZAPINE
     Indication: DELUSION
     Route: 048
  9. NOZINAN [Concomitant]
     Active Substance: LEVOMEPROMAZINE
     Indication: DELUSION
     Route: 048

REACTIONS (5)
  - Weight decreased [Not Recovered/Not Resolved]
  - Post procedural infection [Unknown]
  - Stoma site discharge [Recovering/Resolving]
  - Device dislocation [Recovering/Resolving]
  - Device kink [Unknown]

NARRATIVE: CASE EVENT DATE: 2016
